FAERS Safety Report 6412259-X (Version None)
Quarter: 2009Q4

REPORT INFORMATION
  Report Type: 
  Country: None (occurrence: None)
  Receive Date: 20091023
  Receipt Date: 20091019
  Transmission Date: 20100525
  Serious: Yes (Other)
  Sender: FDA-Public Use
  Company Number: US-GENENTECH-292664

PATIENT
  Sex: Female

DRUGS (2)
  1. AVASTIN [Suspect]
     Indication: OVARIAN CANCER
     Route: 042
  2. TAXOL [Suspect]
     Indication: OVARIAN CANCER
     Route: 042

REACTIONS (3)
  - ASTHENIA [None]
  - PERITONITIS [None]
  - UNEVALUABLE EVENT [None]
